FAERS Safety Report 5027069-8 (Version None)
Quarter: 2006Q2

REPORT INFORMATION
  Report Type: 
  Country: None (occurrence: None)
  Receive Date: 20060609
  Receipt Date: 20060531
  Transmission Date: 20061013
  Serious: Yes (Death, Hospitalization, Other)
  Sender: FDA-Public Use
  Company Number: 2006058787

PATIENT
  Age: 47 Year
  Sex: Male
  Weight: 117.9352 kg

DRUGS (11)
  1. CELEBREX [Suspect]
     Indication: ARTHRALGIA
     Dosage: 400 MG (200 MG, 2 IN 1 D)
     Dates: start: 19990101
  2. AMBIEN [Concomitant]
  3. OXYCONTIN [Concomitant]
  4. TIZANIDINE HCL [Concomitant]
  5. NAPRONTAG FLEX (CARISOPRODOL, NAPROXEN) [Concomitant]
  6. NAPROXEN [Concomitant]
  7. LISINOPRIL [Concomitant]
  8. PREVACID [Concomitant]
  9. VERAPAMIL [Concomitant]
  10. METFORMIN [Concomitant]
  11. PRAVACHOL [Concomitant]

REACTIONS (4)
  - ACUTE MYOCARDIAL INFARCTION [None]
  - ARTERIOSCLEROSIS [None]
  - CARDIAC DISORDER [None]
  - HYPERTENSION [None]
